FAERS Safety Report 6998944-X (Version None)
Quarter: 2010Q3

REPORT INFORMATION
  Report Type: 
  Country: None (occurrence: None)
  Receive Date: 20100920
  Receipt Date: 20100331
  Transmission Date: 20110219
  Serious: Yes (Hospitalization)
  Sender: FDA-Public Use
  Company Number: US-ASTRAZENECA-2006UW05838

PATIENT
  Age: 16741 Day
  Sex: Female
  Weight: 125.6 kg

DRUGS (15)
  1. SEROQUEL [Suspect]
     Indication: INSOMNIA
     Dosage: 25-100 MG
     Route: 048
     Dates: start: 20030116, end: 20051212
  2. SEROQUEL [Suspect]
     Indication: DEPRESSION
     Dosage: 25-100 MG
     Route: 048
     Dates: start: 20030116, end: 20051212
  3. SEROQUEL [Suspect]
     Indication: SLEEP DISORDER
     Dosage: 25-100 MG
     Route: 048
     Dates: start: 20030116, end: 20051212
  4. SEROQUEL [Suspect]
     Dosage: 100 MG, TWO TABLETS AT BED TIME
     Route: 048
     Dates: start: 20060202
  5. SEROQUEL [Suspect]
     Dosage: 100 MG, TWO TABLETS AT BED TIME
     Route: 048
     Dates: start: 20060202
  6. SEROQUEL [Suspect]
     Dosage: 100 MG, TWO TABLETS AT BED TIME
     Route: 048
     Dates: start: 20060202
  7. BUMEX [Concomitant]
     Route: 048
  8. KLONOPIN [Concomitant]
     Dosage: 2 MG, 1/2 TABLET TWICW DAILY AND 1 TABLET AT BED TIME
     Route: 048
  9. EFFEXOR XR [Concomitant]
     Route: 048
  10. SINGULAIR [Concomitant]
     Route: 048
  11. ALPRAZOLAM [Concomitant]
     Route: 048
  12. AMBIEN [Concomitant]
     Indication: SLEEP DISORDER
     Route: 048
  13. VICODIN [Concomitant]
     Dosage: 500 MG 2 Q 4 HOURS
     Dates: start: 20000613
  14. MEDRON [Concomitant]
     Dates: start: 20000613
  15. VOLMAX [Concomitant]
     Dates: start: 20000613

REACTIONS (5)
  - CHEST PAIN [None]
  - COSTOCHONDRITIS [None]
  - DIABETES MELLITUS [None]
  - DYSPNOEA [None]
  - INSULIN-REQUIRING TYPE 2 DIABETES MELLITUS [None]
